FAERS Safety Report 6330790-2 (Version None)
Quarter: 2009Q3

REPORT INFORMATION
  Report Type: 
  Country: None (occurrence: None)
  Receive Date: 20090827
  Receipt Date: 20090819
  Transmission Date: 20100115
  Serious: Yes (Hospitalization)
  Sender: FDA-Public Use
  Company Number: PHHY2009CN35756

PATIENT
  Age: 59 Year
  Sex: Male

DRUGS (10)
  1. KAFLAN [Suspect]
     Indication: GOUT
     Dosage: UNK
     Route: 065
     Dates: start: 20080112, end: 20080412
  2. DIPYRONE INJ [Concomitant]
  3. CLARITHROMYCIN [Concomitant]
  4. ISOSORBIDE DINITRATE [Concomitant]
  5. RESERPINE [Concomitant]
  6. TRIAMTERENE [Concomitant]
  7. PTERIDINE [Concomitant]
  8. BAI JIA HEI [Concomitant]
  9. BUPLEURUM [Concomitant]
  10. NIAO GAN NING [Concomitant]

REACTIONS (14)
  - BLOOD PRESSURE DECREASED [None]
  - DIZZINESS [None]
  - DYSURIA [None]
  - FAECES DISCOLOURED [None]
  - FATIGUE [None]
  - HAEMATEMESIS [None]
  - HYPERHIDROSIS [None]
  - LOSS OF CONSCIOUSNESS [None]
  - MYOCARDIAL ISCHAEMIA [None]
  - NAUSEA [None]
  - PYREXIA [None]
  - RESTLESSNESS [None]
  - SHOCK HAEMORRHAGIC [None]
  - UPPER GASTROINTESTINAL HAEMORRHAGE [None]
